FAERS Safety Report 17115527 (Version 1)
Quarter: 2019Q4

REPORT INFORMATION
  Report Type: Spontaneous
  Country: US (occurrence: US)
  Receive Date: 20191204
  Receipt Date: 20191204
  Transmission Date: 20200122
  Serious: Yes (Hospitalization, Other)
  Sender: FDA-Public Use
  Company Number: None

PATIENT
  Age: 57 Year
  Sex: Female

DRUGS (9)
  1. HUMIRA [Suspect]
     Active Substance: ADALIMUMAB
     Indication: COLITIS ULCERATIVE
     Dosage: ?          OTHER FREQUENCY:EVERY OTHER WEEK;?
     Route: 058
     Dates: start: 20190301
  2. CYCLOBENZAPR [Concomitant]
     Active Substance: CYCLOBENZAPRINE
  3. DICLOFENAC GEL [Concomitant]
     Active Substance: DICLOFENAC
  4. DICLOFENAC [Concomitant]
     Active Substance: DICLOFENAC
  5. TRAMADOL. [Concomitant]
     Active Substance: TRAMADOL
  6. AMLOD/BENAZP [Concomitant]
  7. OXYCODONE AND ACETAMINOPHEN [Concomitant]
     Active Substance: ACETAMINOPHEN\OXYCODONE HYDROCHLORIDE
  8. HYDROXYZ PAM [Concomitant]
     Active Substance: HYDROXYZINE PAMOATE
  9. METHYLPRED [Concomitant]
     Active Substance: METHYLPREDNISOLONE

REACTIONS (4)
  - Impaired quality of life [None]
  - Diarrhoea [None]
  - Condition aggravated [None]
  - Product dose omission [None]

NARRATIVE: CASE EVENT DATE: 20191112
